FAERS Safety Report 16554803 (Version 1)
Quarter: 2019Q3

REPORT INFORMATION
  Report Type: Spontaneous
  Country: GB (occurrence: GB)
  Receive Date: 20190710
  Receipt Date: 20190710
  Transmission Date: 20191004
  Serious: Yes (Other)
  Sender: FDA-Public Use
  Company Number: GB-009507513-1907GBR003778

PATIENT
  Age: 14 Year
  Sex: Male
  Weight: 52 kg

DRUGS (7)
  1. MONTELUKAST SODIUM. [Suspect]
     Active Substance: MONTELUKAST SODIUM
     Dosage: 5 MILLIGRAM
     Route: 048
     Dates: start: 20130524
  2. BENZOYL PEROXIDE. [Concomitant]
     Active Substance: BENZOYL PEROXIDE
     Dosage: APPLY AT NIGHT.
     Dates: start: 20170921
  3. SERETIDE [Concomitant]
     Active Substance: FLUTICASONE PROPIONATE\SALMETEROL XINAFOATE
     Dosage: PUFF.
     Dates: start: 20180612
  4. ALBUTEROL. [Concomitant]
     Active Substance: ALBUTEROL
     Dosage: PUFFS.
     Dates: start: 20180612
  5. MONTELUKAST SODIUM. [Suspect]
     Active Substance: MONTELUKAST SODIUM
     Dates: start: 201310, end: 201503
  6. MONTELUKAST SODIUM. [Suspect]
     Active Substance: MONTELUKAST SODIUM
     Dosage: UNK
     Dates: start: 20190614
  7. SERTRALINE HYDROCHLORIDE. [Concomitant]
     Active Substance: SERTRALINE HYDROCHLORIDE
     Dosage: EVERY DAY.
     Dates: start: 20181213

REACTIONS (6)
  - Personality change [Unknown]
  - Anxiety [Unknown]
  - Loss of consciousness [Unknown]
  - Hallucination [Recovered/Resolved]
  - Nightmare [Unknown]
  - Depression [Unknown]

NARRATIVE: CASE EVENT DATE: 201309
